FAERS Safety Report 19908411 (Version 1)
Quarter: 2021Q4

REPORT INFORMATION
  Report Type: Spontaneous
  Country: CN (occurrence: CN)
  Receive Date: 20211001
  Receipt Date: 20211001
  Transmission Date: 20220304
  Serious: Yes (Other)
  Sender: FDA-Public Use
  Company Number: 2021A750884

PATIENT
  Age: 63 Year
  Sex: Male

DRUGS (3)
  1. IMFINZI [Suspect]
     Active Substance: DURVALUMAB
     Indication: Small cell lung cancer
     Dosage: 1500 MG DAY 1 Q3W
     Route: 042
  2. IMFINZI [Suspect]
     Active Substance: DURVALUMAB
     Indication: Small cell lung cancer
     Dosage: 1500 MG DAY 1 Q4W
     Route: 042
  3. ETOPOSIDE [Concomitant]
     Active Substance: ETOPOSIDE
     Indication: Small cell lung cancer
     Dosage: 0.2G DAY1 - 3 + 60 MG DAY 1 - 2, Q3W
     Dates: start: 20200511

REACTIONS (2)
  - Drug-induced liver injury [Recovering/Resolving]
  - Immune-mediated hepatitis [Recovering/Resolving]
